FAERS Safety Report 9205747 (Version 2)
Quarter: 2013Q3

REPORT INFORMATION
  Report Type: Spontaneous
  Country: SR (occurrence: None)
  Receive Date: 20130401
  Receipt Date: 20130820
  Transmission Date: 20140515
  Serious: Yes (Death)
  Sender: FDA-Public Use
  Company Number: 1646902

PATIENT
  Sex: 0

DRUGS (10)
  1. NORADRENALINE TARTRATE [Suspect]
     Dates: start: 20120915, end: 20120918
  2. THIOPENTAL SODIUM [Concomitant]
  3. MIDAZOLAM [Concomitant]
  4. MORPHINE [Concomitant]
  5. FLUID [Concomitant]
  6. HYDROCORTISONE [Concomitant]
  7. DESMOPRESSIN [Concomitant]
  8. HYPERTONIC SALINE SOLUTION [Concomitant]
  9. HARTMANN^S SOLUTIONS [Concomitant]
  10. CEFAZOLIN [Concomitant]

REACTIONS (3)
  - Brain death [None]
  - Brain injury [None]
  - Sepsis [None]
